FAERS Safety Report 7604833-X (Version None)
Quarter: 2011Q3

REPORT INFORMATION
  Report Type: 
  Country: None (occurrence: None)
  Receive Date: 20110712
  Receipt Date: 20110627
  Transmission Date: 20111222
  Serious: Yes (Hospitalization)
  Sender: FDA-Public Use
  Company Number: DE-GENENTECH-321237

PATIENT
  Sex: Female

DRUGS (6)
  1. ENBREL [Suspect]
     Indication: JUVENILE ARTHRITIS
     Dosage: UNK
     Route: 065
     Dates: start: 20080429, end: 20080512
  2. TOCILIZUMAB [Suspect]
     Dosage: UNK
     Route: 065
     Dates: start: 20100901
  3. PREDNISONE [Suspect]
     Indication: JUVENILE ARTHRITIS
     Dosage: 25 MG, UNK
     Route: 065
     Dates: start: 20080429
  4. RITUXAN [Suspect]
     Indication: JUVENILE ARTHRITIS
     Dosage: 500 MG, UNK
     Route: 042
     Dates: start: 20110413
  5. TOCILIZUMAB [Suspect]
     Indication: JUVENILE ARTHRITIS
     Dosage: UNK
     Route: 065
     Dates: start: 20081209
  6. ARAVA [Suspect]
     Indication: JUVENILE ARTHRITIS
     Dosage: 10 MG, UNK
     Route: 065
     Dates: start: 20080429, end: 20110512

REACTIONS (3)
  - HISTIOCYTOSIS HAEMATOPHAGIC [None]
  - ARTHRITIS BACTERIAL [None]
  - INTERSTITIAL LUNG DISEASE [None]
